FAERS Safety Report 8616081-5 (Version None)
Quarter: 2012Q3

REPORT INFORMATION
  Report Type: 
  Country: None (occurrence: None)
  Receive Date: 20120823
  Receipt Date: 20120821
  Transmission Date: 20120928
  Serious: Yes (Other)
  Sender: FDA-Public Use
  Company Number: CN-PFIZER INC-2012206091

PATIENT
  Age: 77 Year
  Sex: Male

DRUGS (2)
  1. DIGOXIN [Suspect]
     Dosage: 0.125 MG, 1X/DAY
     Route: 048
     Dates: start: 20090115, end: 20090124
  2. CORDARONE [Suspect]
     Indication: ARRHYTHMIA
     Dosage: 0.2 G, 2X/DAY
     Route: 048
     Dates: start: 20090114, end: 20090125

REACTIONS (1)
  - ELECTROCARDIOGRAM ABNORMAL [None]
